FAERS Safety Report 8166998-3 (Version None)
Quarter: 2012Q1

REPORT INFORMATION
  Report Type: 
  Country: None (occurrence: None)
  Receive Date: 20120227
  Receipt Date: 20120224
  Transmission Date: 20120608
  Serious: Yes (Death)
  Sender: FDA-Public Use
  Company Number: US-ABBOTT-12P-163-0908757-00

PATIENT
  Sex: Female

DRUGS (6)
  1. UNKNOWN EYE DROPS [Concomitant]
     Indication: GLAUCOMA
  2. METHOTREXATE [Concomitant]
     Indication: PRODUCT USED FOR UNKNOWN INDICATION
  3. VICODIN [Suspect]
     Indication: PRODUCT USED FOR UNKNOWN INDICATION
  4. UNKNOWN BLOOD PRESSURE MEDICATION [Concomitant]
     Indication: HYPERTENSION
  5. HUMIRA [Suspect]
     Indication: RHEUMATOID ARTHRITIS
     Dates: start: 19970101, end: 20100901
  6. CELEBREX [Concomitant]
     Indication: PRODUCT USED FOR UNKNOWN INDICATION

REACTIONS (6)
  - GASTRIC NEOPLASM [None]
  - HYPOPHAGIA [None]
  - INTESTINAL OBSTRUCTION [None]
  - PAIN [None]
  - GASTRIC DISORDER [None]
  - MOBILITY DECREASED [None]
